FAERS Safety Report 21698436 (Version 2)
Quarter: 2022Q4

REPORT INFORMATION
  Report Type: Spontaneous
  Country: ES (occurrence: ES)
  Receive Date: 20221208
  Receipt Date: 20221214
  Transmission Date: 20230113
  Serious: Yes (Life-Threatening, Hospitalization, Other)
  Sender: FDA-Public Use
  Company Number: ES-PFIZER INC-PV202200118113

PATIENT
  Age: 49 Year
  Sex: Female

DRUGS (2)
  1. LORAZEPAM [Suspect]
     Active Substance: LORAZEPAM
     Dosage: UNK
  2. NAPROXEN [Suspect]
     Active Substance: NAPROXEN
     Dosage: UNK

REACTIONS (7)
  - Compartment syndrome [Unknown]
  - Suicide attempt [Unknown]
  - Overdose [Unknown]
  - Rhabdomyolysis [Unknown]
  - Renal failure [Unknown]
  - Metabolic acidosis [Unknown]
  - Acute stress disorder [Unknown]
